FAERS Safety Report 24833098 (Version 8)
Quarter: 2025Q2

REPORT INFORMATION
  Report Type: Spontaneous
  Country: IT (occurrence: IT)
  Receive Date: 20250111
  Receipt Date: 20250609
  Transmission Date: 20250717
  Serious: Yes (Death, Life-Threatening, Hospitalization, Other)
  Sender: CELLTRION
  Company Number: IT-BAXTER-2024BAX018613

PATIENT

DRUGS (69)
  1. RITUXIMAB [Suspect]
     Active Substance: RITUXIMAB
     Indication: Richter^s syndrome
     Route: 065
     Dates: start: 20240415, end: 20240424
  2. RITUXIMAB [Suspect]
     Active Substance: RITUXIMAB
     Indication: Diffuse large B-cell lymphoma stage III
     Route: 042
     Dates: start: 20240430, end: 20240430
  3. DOXORUBICIN [Suspect]
     Active Substance: DOXORUBICIN
     Indication: Richter^s syndrome
     Route: 065
     Dates: start: 20240412, end: 20240412
  4. DOXORUBICIN [Suspect]
     Active Substance: DOXORUBICIN
     Indication: Diffuse large B-cell lymphoma stage III
     Route: 042
     Dates: start: 20240430
  5. CYCLOPHOSPHAMIDE [Suspect]
     Active Substance: CYCLOPHOSPHAMIDE
     Indication: Richter^s syndrome
     Route: 065
     Dates: start: 20240412, end: 20240412
  6. CYCLOPHOSPHAMIDE [Suspect]
     Active Substance: CYCLOPHOSPHAMIDE
     Indication: Diffuse large B-cell lymphoma stage III
     Route: 042
     Dates: start: 20240430, end: 20240430
  7. VINCRISTINE SULFATE [Suspect]
     Active Substance: VINCRISTINE SULFATE
     Indication: Richter^s syndrome
     Route: 042
     Dates: start: 20240430, end: 20240430
  8. VINCRISTINE SULFATE [Suspect]
     Active Substance: VINCRISTINE SULFATE
     Indication: Diffuse large B-cell lymphoma stage III
  9. PREDNISONE [Suspect]
     Active Substance: PREDNISONE
     Indication: Richter^s syndrome
     Route: 048
     Dates: start: 20240430, end: 20240506
  10. PREDNISONE [Suspect]
     Active Substance: PREDNISONE
     Indication: Diffuse large B-cell lymphoma stage III
  11. EPCORITAMAB [Suspect]
     Active Substance: EPCORITAMAB
     Indication: Richter^s syndrome
     Route: 058
     Dates: start: 20240502, end: 20240502
  12. EPCORITAMAB [Suspect]
     Active Substance: EPCORITAMAB
     Indication: Diffuse large B-cell lymphoma stage III
     Route: 058
     Dates: start: 20240517, end: 20240517
  13. EPCORITAMAB [Suspect]
     Active Substance: EPCORITAMAB
     Route: 058
     Dates: start: 20240510, end: 20240510
  14. HYDROCORTISONE [Suspect]
     Active Substance: HYDROCORTISONE
     Indication: Product used for unknown indication
     Route: 042
     Dates: start: 20240430, end: 20240430
  15. CHLORPHENIRAMINE MALEATE [Concomitant]
     Active Substance: CHLORPHENIRAMINE MALEATE
     Indication: Premedication
     Route: 065
     Dates: start: 20240415, end: 20240430
  16. CHLORPHENIRAMINE MALEATE [Concomitant]
     Active Substance: CHLORPHENIRAMINE MALEATE
     Route: 042
     Dates: start: 20240502, end: 20240517
  17. CHLORPHENIRAMINE MALEATE [Concomitant]
     Active Substance: CHLORPHENIRAMINE MALEATE
     Route: 042
     Dates: start: 20240517, end: 20240517
  18. DEXAMETHASONE [Concomitant]
     Active Substance: DEXAMETHASONE
     Route: 065
     Dates: start: 20240409, end: 20240430
  19. DEXAMETHASONE [Concomitant]
     Active Substance: DEXAMETHASONE
     Route: 042
     Dates: start: 20240509, end: 20240519
  20. HYDROCORTISONE [Concomitant]
     Active Substance: HYDROCORTISONE
     Indication: Diffuse large B-cell lymphoma stage III
     Route: 042
     Dates: start: 20240415, end: 20240430
  21. LEVOFLOXACIN [Concomitant]
     Active Substance: LEVOFLOXACIN
     Route: 065
     Dates: start: 20240506, end: 20240513
  22. MOVICOL [Concomitant]
     Active Substance: POLYETHYLENE GLYCOL 3350\POTASSIUM CHLORIDE\SODIUM BICARBONATE\SODIUM CHLORIDE
     Route: 065
     Dates: start: 20240402, end: 20240419
  23. NALOXONE HYDROCHLORIDE\OXYCODONE HYDROCHLORIDE [Concomitant]
     Active Substance: NALOXONE HYDROCHLORIDE\OXYCODONE HYDROCHLORIDE
     Route: 065
     Dates: start: 20240402, end: 20240419
  24. ZANUBRUTINIB [Concomitant]
     Active Substance: ZANUBRUTINIB
     Route: 065
     Dates: start: 20240408, end: 20240516
  25. URSODIOL [Concomitant]
     Active Substance: URSODIOL
     Route: 065
     Dates: start: 20240402, end: 20240418
  26. ALLOPURINOL [Concomitant]
     Active Substance: ALLOPURINOL
     Route: 065
     Dates: start: 20240402, end: 20240515
  27. ACYCLOVIR [Concomitant]
     Active Substance: ACYCLOVIR
     Route: 065
     Dates: start: 20240402
  28. ENOXAPARIN [Concomitant]
     Active Substance: ENOXAPARIN
     Route: 065
     Dates: start: 20240402
  29. BACTRIM [Concomitant]
     Active Substance: SULFAMETHOXAZOLE\TRIMETHOPRIM
     Route: 065
     Dates: start: 20240403
  30. FOLIC ACID [Concomitant]
     Active Substance: FOLIC ACID
     Route: 065
     Dates: start: 20240406
  31. MORPHINE HYDROCHLORIDE [Concomitant]
     Active Substance: MORPHINE HYDROCHLORIDE
     Route: 065
     Dates: start: 20240408, end: 20240520
  32. PANTOPRAZOLE [Concomitant]
     Active Substance: PANTOPRAZOLE
     Route: 065
     Dates: start: 20240408
  33. FENTANYL [Concomitant]
     Active Substance: FENTANYL
     Route: 065
     Dates: start: 20240409
  34. FLUCONAZOLE [Concomitant]
     Active Substance: FLUCONAZOLE
     Route: 065
     Dates: start: 20240415, end: 20240415
  35. NALDEMEDINE [Concomitant]
     Active Substance: NALDEMEDINE
     Route: 065
     Dates: start: 20240409
  36. SENNOSIDES [Concomitant]
     Active Substance: SENNOSIDES
     Route: 065
     Dates: start: 20240409, end: 20240418
  37. LYRICA [Concomitant]
     Active Substance: PREGABALIN
     Route: 065
     Dates: start: 20240410
  38. KETOROLAC TROMETHAMINE [Concomitant]
     Active Substance: KETOROLAC TROMETHAMINE
     Route: 065
     Dates: start: 20240411, end: 20240414
  39. RASBURICASE [Concomitant]
     Active Substance: RASBURICASE
     Route: 065
     Dates: start: 20240412, end: 20240519
  40. PALONOSETRON [Concomitant]
     Active Substance: PALONOSETRON
     Route: 065
     Dates: start: 20240412, end: 20240430
  41. FILGRASTIM [Concomitant]
     Active Substance: FILGRASTIM
     Route: 065
     Dates: start: 20240424, end: 20240426
  42. NALDEMEDINE TOSYLATE [Concomitant]
     Active Substance: NALDEMEDINE TOSYLATE
     Route: 065
     Dates: start: 20240424
  43. NALOXONE HYDROCHLORIDE\OXYCODONE HYDROCHLORIDE [Concomitant]
     Active Substance: NALOXONE HYDROCHLORIDE\OXYCODONE HYDROCHLORIDE
     Route: 065
     Dates: start: 20240424
  44. LASIX [Concomitant]
     Active Substance: FUROSEMIDE
     Route: 065
     Dates: start: 20240429, end: 20240429
  45. ERYTHROPOIETIN [Concomitant]
     Active Substance: ERYTHROPOIETIN
     Route: 065
     Dates: start: 20240507
  46. ACETAMINOPHEN [Concomitant]
     Active Substance: ACETAMINOPHEN
     Indication: Premedication
     Route: 065
     Dates: start: 20240402
  47. ACETAMINOPHEN [Concomitant]
     Active Substance: ACETAMINOPHEN
     Route: 048
     Dates: start: 20240502, end: 20240517
  48. ACETAMINOPHEN [Concomitant]
     Active Substance: ACETAMINOPHEN
     Route: 048
     Dates: start: 20240517, end: 20240517
  49. VINCRISTINE [Concomitant]
     Active Substance: VINCRISTINE
     Route: 065
     Dates: start: 20240409, end: 20240409
  50. DEXAMETHASONE PHOSPHATE [Concomitant]
     Active Substance: DEXAMETHASONE PHOSPHATE
     Route: 042
     Dates: start: 20240502, end: 20240502
  51. DEXAMETHASONE PHOSPHATE [Concomitant]
     Active Substance: DEXAMETHASONE PHOSPHATE
     Route: 065
     Dates: start: 20240517, end: 20240519
  52. RABEPRAZOLE [Concomitant]
     Active Substance: RABEPRAZOLE
     Route: 065
     Dates: start: 20240510, end: 20240519
  53. FUROSEMIDE [Concomitant]
     Active Substance: FUROSEMIDE
     Route: 065
     Dates: start: 20240510, end: 20240511
  54. CANRENOATE POTASSIUM [Concomitant]
     Active Substance: CANRENOATE POTASSIUM
     Route: 065
     Dates: start: 20240510, end: 20240511
  55. OLICLINOMEL [AMINO ACIDS NOS;GLUCOSE;LIPIDS NOS] [Concomitant]
     Route: 065
     Dates: start: 20240513, end: 20240518
  56. VITAMINS [Concomitant]
     Active Substance: VITAMINS
     Route: 065
     Dates: start: 20240513
  57. LEVOSULPIRIDE [Concomitant]
     Active Substance: LEVOSULPIRIDE
     Route: 065
     Dates: start: 20240514, end: 20240519
  58. GLUCOSE;POTASSIUM CHLORIDE [Concomitant]
     Route: 065
     Dates: start: 20240514, end: 20240518
  59. FENTANYL [Concomitant]
     Active Substance: FENTANYL
     Route: 065
     Dates: start: 20240516, end: 20240516
  60. FLAVOXATE;PROPYPHENAZONE [Concomitant]
     Route: 065
     Dates: start: 20240516
  61. TAMSULOSIN HYDROCHLORIDE [Concomitant]
     Active Substance: TAMSULOSIN HYDROCHLORIDE
     Route: 065
     Dates: start: 20240516
  62. INSULIN HUMAN [Concomitant]
     Active Substance: INSULIN HUMAN
     Route: 065
     Dates: start: 20240518, end: 20240520
  63. TRAMADOL [Concomitant]
     Active Substance: TRAMADOL
     Route: 065
     Dates: start: 20240519, end: 20240519
  64. ONDANSETRON [Concomitant]
     Active Substance: ONDANSETRON
     Route: 065
     Dates: start: 20240519, end: 20240519
  65. NEOSTIGMINE METHYLSULFATE [Concomitant]
     Active Substance: NEOSTIGMINE METHYLSULFATE
     Route: 065
     Dates: start: 20240519, end: 20240519
  66. DELORAZEPAM [Concomitant]
     Active Substance: DELORAZEPAM
     Route: 065
     Dates: start: 20240519, end: 20240519
  67. DEXMEDETOMIDINE HYDROCHLORIDE [Concomitant]
     Active Substance: DEXMEDETOMIDINE HYDROCHLORIDE
     Route: 065
     Dates: start: 20240520, end: 20240520
  68. TALOFEN [Concomitant]
     Active Substance: PROMAZINE HYDROCHLORIDE
     Route: 065
     Dates: start: 20240520, end: 20240520
  69. CYTARABINE [Concomitant]
     Active Substance: CYTARABINE
     Route: 065
     Dates: start: 20240519, end: 20240519

REACTIONS (6)
  - Disease progression [Fatal]
  - Renal ischaemia [Not Recovered/Not Resolved]
  - Febrile neutropenia [Recovered/Resolved]
  - Abdominal mass [Unknown]
  - Sinus tachycardia [Unknown]
  - Anaemia [Unknown]

NARRATIVE: CASE EVENT DATE: 20240509
